FAERS Safety Report 6130371-X (Version None)
Quarter: 2009Q1

REPORT INFORMATION
  Report Type: 
  Country: None (occurrence: None)
  Receive Date: 20090324
  Receipt Date: 20090319
  Transmission Date: 20090719
  Serious: No
  Sender: FDA-Public Use
  Company Number: US-B.I. PHARMACEUTICALS,INC./RIDGEFIELD-2009-BP-02300BP

PATIENT
  Sex: Male

DRUGS (5)
  1. FLOMAX [Suspect]
     Indication: POLLAKIURIA
     Dosage: .4MG
  2. VYTORIN [Concomitant]
  3. COZAAR [Concomitant]
     Dosage: 50MG
  4. HYDROCHLOROTHIAZIDE [Concomitant]
  5. TAZTIA XT [Concomitant]
     Dosage: 300MG

REACTIONS (2)
  - BLOOD PRESSURE DECREASED [None]
  - DIZZINESS [None]
